FAERS Safety Report 9019726 (Version 3)
Quarter: 2013Q2

REPORT INFORMATION
  Report Type: Spontaneous
  Country: JP (occurrence: JP)
  Receive Date: 20130118
  Receipt Date: 20130422
  Transmission Date: 20140414
  Serious: Yes (Life-Threatening, Other)
  Sender: FDA-Public Use
  Company Number: JP-PFIZER INC-2013022453

PATIENT
  Age: 65 Year
  Sex: Male
  Weight: 65 kg

DRUGS (39)
  1. DECADRON [Concomitant]
     Dosage: UNK
     Dates: start: 20111101, end: 20120502
  2. GLYCEOL [Concomitant]
     Dosage: UNK
     Dates: start: 20120505, end: 20120517
  3. FOSTOIN [Concomitant]
     Dosage: UNK
     Dates: start: 20120507, end: 20120514
  4. PERDIPINE [Concomitant]
     Dosage: UNK
     Dates: start: 20120505, end: 20120514
  5. WYSTAL [Concomitant]
     Dosage: UNK
     Dates: start: 20120504, end: 20120507
  6. MEROPENEM [Concomitant]
     Dosage: UNK
     Dates: start: 20120507, end: 20120511
  7. GRAN [Concomitant]
     Dosage: UNK
     Dates: start: 20120507, end: 20120511
  8. PHENOBAL [Concomitant]
     Dosage: UNK
     Dates: start: 20120506, end: 20120507
  9. FOY [Concomitant]
     Dosage: UNK
     Dates: start: 20120507, end: 20120511
  10. BAYASPIRIN [Concomitant]
     Dosage: UNK
     Dates: end: 20120504
  11. ROZEREM [Concomitant]
     Dosage: UNK
     Dates: end: 20120504
  12. LIVALO [Concomitant]
     Dosage: UNK
     Dates: end: 20120504
  13. ARTIST [Concomitant]
     Dosage: UNK
     Dates: end: 20120504
  14. TAKEPRON [Concomitant]
     Dosage: UNK
     Dates: end: 20120504
  15. HALCION [Concomitant]
     Dosage: UNK
     Dates: end: 20120504
  16. ADONA [Concomitant]
     Dosage: UNK
     Dates: start: 20120505, end: 20120507
  17. TRANSAMIN [Concomitant]
     Dosage: UNK
     Dates: start: 20120505, end: 20120507
  18. HORIZON [Concomitant]
     Dosage: UNK
     Dates: start: 20120504
  19. CEFAMEZIN [Concomitant]
     Dosage: UNK
     Dates: start: 20120511
  20. CAMPTO [Suspect]
     Indication: COLON CANCER
     Dosage: 187.1 MG/M2 (260 MG/BODY), 1X/DAY
     Route: 041
     Dates: start: 20111101, end: 20111101
  21. CAMPTO [Suspect]
     Dosage: 187.187.1 MG/M2 (260 MG/BODY),, 1X/DAY
     Route: 041
     Dates: start: 20111124, end: 20111124
  22. CAMPTO [Suspect]
     Dosage: 187.1 MG/M2 (260 MG/BODY),, 1X/DAY
     Route: 041
     Dates: start: 20111205, end: 20111205
  23. CAMPTO [Suspect]
     Dosage: 172.7 MG/M2 (240 MG/BODY), 1X/DAY
     Route: 041
     Dates: start: 20120112, end: 20120112
  24. CAMPTO [Suspect]
     Dosage: 172.7 MG/M2 (240 MG/BODY), , 1X/DAY
     Route: 041
     Dates: start: 20120202, end: 20120202
  25. CAMPTO [Suspect]
     Dosage: 172.7 MG/M2 (240 MG/BODY), , 1X/DAY
     Route: 041
     Dates: start: 20120229, end: 20120229
  26. CAMPTO [Suspect]
     Dosage: 172.7 MG/M2 (240 MG/BODY), , 1X/DAY
     Route: 041
     Dates: start: 20120321, end: 20120321
  27. CAMPTO [Suspect]
     Dosage: 172.7 MG/M2 (240 MG/BODY), , 1X/DAY
     Route: 041
     Dates: start: 20120411, end: 20120411
  28. CAMPTO [Suspect]
     Dosage: 172.7 MG/M2 (240 MG/BODY), , 1X/DAY
     Route: 041
     Dates: start: 20120502, end: 20120502
  29. TS-1 [Suspect]
     Indication: COLON CANCER
     Dosage: 120 MG, 2X/DAY
     Route: 048
     Dates: start: 20111101, end: 20111114
  30. TS-1 [Suspect]
     Dosage: 120 MG, 2X/DAY
     Route: 048
     Dates: start: 20111124
  31. TS-1 [Suspect]
     Dosage: 120 MG, 2X/DAY
     Route: 048
     Dates: start: 20111205
  32. TS-1 [Suspect]
     Dosage: 120 MG, 2X/DAY
     Route: 048
     Dates: start: 20120112, end: 20120125
  33. TS-1 [Suspect]
     Dosage: 120 MG, 2X/DAY
     Route: 048
     Dates: start: 20120202, end: 20120215
  34. TS-1 [Suspect]
     Dosage: 120 MG, 2X/DAY
     Route: 048
     Dates: start: 20120229, end: 20120313
  35. TS-1 [Suspect]
     Dosage: 120 MG, 2X/DAY
     Route: 048
     Dates: start: 20120321, end: 20120403
  36. TS-1 [Suspect]
     Dosage: 120 MG, 2X/DAY
     Route: 048
     Dates: start: 20120411, end: 20120424
  37. TS-1 [Suspect]
     Dosage: 120 MG, 2X/DAY
     Route: 048
     Dates: start: 20120502, end: 20120504
  38. AVASTIN [Concomitant]
     Dosage: 500 MG/BODY
     Dates: start: 20111101, end: 20120229
  39. KYTRIL [Concomitant]
     Dosage: UNK
     Dates: start: 20111101, end: 20120502

REACTIONS (5)
  - Abscess [Recovered/Resolved]
  - Disseminated intravascular coagulation [Recovered/Resolved]
  - Sepsis [Recovered/Resolved]
  - Neutropenia [Recovered/Resolved]
  - Leukopenia [Recovered/Resolved]
